FAERS Safety Report 4302809-1 (Version None)
Quarter: 2004Q1

REPORT INFORMATION
  Report Type: 
  Country: None (occurrence: None)
  Receive Date: 20040126
  Receipt Date: 20031015
  Transmission Date: 20041129
  Serious: No
  Sender: FDA-Public Use
  Company Number: USA031049989

PATIENT
  Age: 14 Year
  Sex: Male
  Weight: 64 kg

DRUGS (1)
  1. STRATTERA [Suspect]
     Indication: DISTURBANCE IN ATTENTION
     Dosage: 80 MG
     Dates: start: 20031002

REACTIONS (4)
  - CRYING [None]
  - INSOMNIA [None]
  - SCHOOL REFUSAL [None]
  - STRESS SYMPTOMS [None]
